FAERS Safety Report 9698330 (Version 1)
Quarter: 2013Q4

REPORT INFORMATION
  Report Type: Spontaneous
  Country: US (occurrence: US)
  Receive Date: 20131120
  Receipt Date: 20131120
  Transmission Date: 20140711
  Serious: No
  Sender: FDA-Public Use
  Company Number: US-BAYER-2013-142171

PATIENT
  Age: 64 Year
  Sex: Male

DRUGS (1)
  1. ALEVE CAPLET [Suspect]

REACTIONS (1)
  - Abdominal discomfort [None]
